FAERS Safety Report 5152987-X (Version None)
Quarter: 2006Q4

REPORT INFORMATION
  Report Type: 
  Country: None (occurrence: None)
  Receive Date: 20061117
  Receipt Date: 20061108
  Transmission Date: 20070319
  Serious: Yes (Other)
  Sender: FDA-Public Use
  Company Number: 2006UW23381

PATIENT
  Age: 51 Year
  Sex: Female
  Weight: 122.5 kg

DRUGS (6)
  1. ARIMIDEX [Suspect]
     Indication: BREAST CANCER FEMALE
     Route: 048
     Dates: start: 20060901, end: 20061101
  2. ZOLADEX [Suspect]
     Dosage: 5 INJECTIONS
     Route: 058
  3. LISINOPRIL [Concomitant]
  4. HYDROCHLOROTHIAZIDE [Concomitant]
  5. PAXIL [Concomitant]
  6. B COMPLEX VITAMINS [Concomitant]

REACTIONS (3)
  - DIABETES MELLITUS [None]
  - HEPATIC ENZYME INCREASED [None]
  - HYPERLIPIDAEMIA [None]
